FAERS Safety Report 14309504 (Version 1)
Quarter: 2017Q4

REPORT INFORMATION
  Report Type: Report from Study
  Country: US (occurrence: US)
  Receive Date: 20171220
  Receipt Date: 20171220
  Transmission Date: 20180321
  Serious: No
  Sender: FDA-Public Use
  Company Number: PHEH2017US041266

PATIENT
  Age: 9 Year
  Weight: 45.6 kg

DRUGS (1)
  1. OMNITROPE [Suspect]
     Active Substance: SOMATROPIN
     Indication: GROWTH HORMONE DEFICIENCY
     Dosage: 2 MG, QD
     Route: 058
     Dates: start: 20131101

REACTIONS (4)
  - Constipation [Unknown]
  - Joint crepitation [Unknown]
  - Gynaecomastia [Recovered/Resolved]
  - Enuresis [Unknown]

NARRATIVE: CASE EVENT DATE: 201403
